FAERS Safety Report 5198950-4 (Version None)
Quarter: 2006Q4

REPORT INFORMATION
  Report Type: 
  Country: None (occurrence: None)
  Receive Date: 20060921
  Receipt Date: 20051107
  Transmission Date: 20070319
  Serious: Yes (Other)
  Sender: FDA-Public Use
  Company Number: PHEH2005US08620

PATIENT
  Age: 40 Year
  Sex: Female
  Weight: 84.4 kg

DRUGS (4)
  1. ZELNORM [Suspect]
     Indication: CONSTIPATION
     Dosage: 6 MG , BID, ORAL
     Route: 048
     Dates: start: 20050517, end: 20050712
  2. PAXIL [Concomitant]
  3. AMBIEN [Concomitant]
  4. WELLBUTRIN XL [Concomitant]

REACTIONS (2)
  - DIZZINESS [None]
  - HYPOTENSION [None]
